FAERS Safety Report 23726915 (Version 3)
Quarter: 2024Q4

REPORT INFORMATION
  Report Type: Spontaneous
  Country: US (occurrence: US)
  Receive Date: 20240410
  Receipt Date: 20241206
  Transmission Date: 20250115
  Serious: No
  Sender: SANOFI AVENTIS
  Company Number: US-SA-SAC20240403001757

PATIENT
  Age: 53 Year
  Sex: Female

DRUGS (5)
  1. DUPIXENT [Suspect]
     Active Substance: DUPILUMAB
     Indication: Asthma
     Dosage: 300 MG, QOW
     Route: 058
     Dates: start: 20230829
  2. OMEPRAZOLE [Concomitant]
     Active Substance: OMEPRAZOLE
  3. DOCQLACE [Concomitant]
     Active Substance: DOCUSATE SODIUM
     Dosage: UNK
  4. KETOROLAC [Concomitant]
     Active Substance: KETOROLAC TROMETHAMINE
     Dosage: UNK
  5. OXYCODONE [Concomitant]
     Active Substance: OXYCODONE
     Dosage: UNK

REACTIONS (7)
  - Sleep disorder due to a general medical condition [Unknown]
  - Impaired quality of life [Recovered/Resolved]
  - Nasopharyngitis [Unknown]
  - Pyrexia [Unknown]
  - Hyperhidrosis [Unknown]
  - Asthma [Unknown]
  - Drug ineffective [Unknown]
